FAERS Safety Report 5776252-2 (Version None)
Quarter: 2008Q2

REPORT INFORMATION
  Report Type: 
  Country: None (occurrence: None)
  Receive Date: 20080616
  Receipt Date: 20080529
  Transmission Date: 20081010
  Serious: Yes (Hospitalization)
  Sender: FDA-Public Use
  Company Number: S07-FRA-01604-01

PATIENT
  Age: 85 Year
  Sex: Female

DRUGS (6)
  1. MEMANTINE HCL [Suspect]
     Dosage: 20 MG QD PO
     Route: 048
     Dates: end: 20070127
  2. AMLODIPINE BESYLATE [Concomitant]
  3. PRAVASTATIN [Concomitant]
  4. FUROSEMIDE [Concomitant]
  5. LEVOTHYROXINE SODIUM [Concomitant]
  6. SIMVASTATIN [Concomitant]

REACTIONS (9)
  - BRONCHOSPASM [None]
  - BUNDLE BRANCH BLOCK RIGHT [None]
  - CONDITION AGGRAVATED [None]
  - HYPOTHYROIDISM [None]
  - LEFT VENTRICULAR HYPERTROPHY [None]
  - OEDEMA PERIPHERAL [None]
  - RALES [None]
  - RENAL FAILURE CHRONIC [None]
  - SINUS BRADYCARDIA [None]
